FAERS Safety Report 5487112-9 (Version None)
Quarter: 2007Q4

REPORT INFORMATION
  Report Type: 
  Country: None (occurrence: None)
  Receive Date: 20071016
  Receipt Date: 20071004
  Transmission Date: 20080405
  Serious: Yes (Death)
  Sender: FDA-Public Use
  Company Number: DK-ROCHE-523343

PATIENT
  Age: 40 Year
  Sex: Male

DRUGS (10)
  1. RIVOTRIL [Suspect]
     Indication: SEDATIVE THERAPY
     Route: 048
     Dates: start: 20050407
  2. CLOZAPINE [Suspect]
     Indication: SCHIZOPHRENIA
     Dosage: STRENGTH REPORTED AS 100+25 MG. DRUG REPORTED AS CLOZAPINE ^ACTAVIS^
     Route: 048
     Dates: start: 19960101
  3. LYSANTIN [Suspect]
     Indication: DRUG USE FOR UNKNOWN INDICATION
     Route: 048
     Dates: start: 20050407
  4. OXAZEPAM [Suspect]
     Indication: SEDATIVE THERAPY
     Dosage: DRUG REPORTED AS OXAZEPAM ^SAD^
     Route: 048
     Dates: start: 20050407
  5. TRILAFON [Concomitant]
     Indication: SCHIZOPHRENIA
     Route: 030
     Dates: start: 20070407
  6. ZYPREXA [Concomitant]
     Indication: SCHIZOPHRENIA
     Route: 048
     Dates: start: 20050407
  7. NORITREN [Concomitant]
     Route: 048
     Dates: start: 20050407
  8. LAKTULOS [Concomitant]
     Indication: CONSTIPATION
     Dosage: DRUG REPORTED AS LAKTULOSE.
     Dates: start: 20050407
  9. NEXIUM [Concomitant]
     Indication: STOMACH DISCOMFORT
     Route: 042
     Dates: start: 20060412
  10. ATROPIN [Concomitant]
     Dosage: DRUG REPORTED AS ATROPIN ^SAD^
     Dates: start: 20050901

REACTIONS (1)
  - DRUG TOXICITY [None]
